FAERS Safety Report 9515723 (Version 1)
Quarter: 2013Q1

REPORT INFORMATION
  Report Type: Spontaneous
  Country: US (occurrence: None)
  Receive Date: 20130305
  Receipt Date: 20130305
  Transmission Date: 20140127
  Serious: Yes (Other)
  Sender: FDA-Public Use
  Company Number: 163-21880-12122577

PATIENT
  Age: 64 Year
  Sex: Male
  Weight: 99.79 kg

DRUGS (3)
  1. REVLIMID [Suspect]
     Indication: PLASMA CELL MYELOMA
     Dosage: 10 MG CAPSULE, 21 IN 28 D, PO, TEMPORARILY INTERRUPTED
     Dates: start: 20120711
  2. ASPIRIN BUFFERED (ACETYLSALICYLIC ACID) [Concomitant]
  3. SERTRALINE HCL (SERTRALINE HYDROCHLORIDE) [Concomitant]

REACTIONS (1)
  - Rash pruritic [None]
